FAERS Safety Report 20459463 (Version 1)
Quarter: 2022Q1

REPORT INFORMATION
  Report Type: Spontaneous
  Country: DE (occurrence: DE)
  Receive Date: 20220211
  Receipt Date: 20220211
  Transmission Date: 20220423
  Serious: Yes (Other)
  Sender: FDA-Public Use
  Company Number: DE-Accord-252905

PATIENT
  Age: 77 Year
  Sex: Male

DRUGS (2)
  1. FLUOROURACIL [Suspect]
     Active Substance: FLUOROURACIL
     Indication: Pancreatic neuroendocrine tumour metastatic
     Dosage: DAYS 1-5, QD 43
     Dates: start: 201409
  2. STREPTOZOCIN [Suspect]
     Active Substance: STREPTOZOCIN
     Indication: Pancreatic neuroendocrine tumour metastatic
     Dosage: DAYS 1-5, QD 43
     Dates: start: 201409

REACTIONS (3)
  - Acute kidney injury [Unknown]
  - Urosepsis [Recovering/Resolving]
  - Staphylococcal infection [Unknown]
